FAERS Safety Report 7499603-X (Version None)
Quarter: 2011Q2

REPORT INFORMATION
  Report Type: 
  Country: None (occurrence: None)
  Receive Date: 20110504
  Receipt Date: 20110422
  Transmission Date: 20111010
  Serious: Yes (Death, Hospitalization)
  Sender: FDA-Public Use
  Company Number: 2011PROUSA00245

PATIENT
  Age: 73 Year
  Sex: Male
  Weight: 70.3 kg

DRUGS (7)
  1. ASPRIIN (ACETYLSALICYLIC ACID) [Concomitant]
  2. ZOMETA [Concomitant]
  3. PROVENGE [Suspect]
     Dosage: 250 ML, SINGLE, INTRAVENOUS
     Route: 042
     Dates: start: 20110110, end: 20110110
  4. DRONABINOL [Concomitant]
  5. PROVENGE [Suspect]
     Indication: PROSTATE CANCER METASTATIC
     Dosage: 250 ML, SINGLE, INTRAVENOUS
     Route: 042
     Dates: start: 20101209, end: 20101209
  6. PROVENGE [Suspect]
     Dosage: 250 ML, SINGLE, INTRAVENOUS
     Route: 042
     Dates: start: 20101223, end: 20101223
  7. LUPRON [Concomitant]

REACTIONS (1)
  - HAEMORRHAGE INTRACRANIAL [None]
